FAERS Safety Report 9500975 (Version 1)
Quarter: 2013Q3

REPORT INFORMATION
  Report Type: Spontaneous
  Country: US (occurrence: US)
  Receive Date: 20130905
  Receipt Date: 20130905
  Transmission Date: 20140515
  Serious: No
  Sender: FDA-Public Use
  Company Number: US-PFIZER INC-2013255016

PATIENT
  Age: 82 Year
  Sex: Female
  Weight: 53.52 kg

DRUGS (3)
  1. LYRICA [Suspect]
     Indication: PAIN
     Dosage: 75 MG, 2X/DAY
     Route: 048
     Dates: start: 201308, end: 20130902
  2. LISINOPRIL [Concomitant]
     Dosage: UNK
  3. BYSTOLIC [Concomitant]
     Dosage: UNK

REACTIONS (3)
  - Activities of daily living impaired [Not Recovered/Not Resolved]
  - Drug ineffective [Not Recovered/Not Resolved]
  - Pain [Not Recovered/Not Resolved]
